FAERS Safety Report 26099031 (Version 1)
Quarter: 2025Q4

REPORT INFORMATION
  Report Type: Report from Study
  Country: CA (occurrence: CA)
  Receive Date: 20251128
  Receipt Date: 20251128
  Transmission Date: 20260117
  Serious: Yes (Other)
  Sender: ABBVIE
  Company Number: CA-ABBVIE-6564240

PATIENT
  Sex: Female

DRUGS (1)
  1. HUMIRA [Suspect]
     Active Substance: ADALIMUMAB
     Indication: Crohn^s disease
     Route: 058

REACTIONS (6)
  - Cyst [Unknown]
  - Pain in extremity [Unknown]
  - Eczema [Unknown]
  - Eye pain [Unknown]
  - Skin cancer [Unknown]
  - Solar lentigo [Unknown]
